FAERS Safety Report 14066933 (Version 1)
Quarter: 2017Q4

REPORT INFORMATION
  Report Type: Spontaneous
  Country: UM (occurrence: UM)
  Receive Date: 20171006
  Receipt Date: 20171006
  Transmission Date: 20180321
  Serious: Yes (Disabling, Other)
  Sender: FDA-Public Use
  Company Number: None

PATIENT
  Age: 64 Year
  Sex: Male
  Weight: 123.75 kg

DRUGS (1)
  1. OXYCODONE 10MG [Suspect]
     Active Substance: OXYCODONE
     Indication: PAIN
     Dosage: EVERY 4 HOURS ORAL
     Route: 048
     Dates: start: 20170918, end: 20170922

REACTIONS (2)
  - Product counterfeit [None]
  - Pain [None]

NARRATIVE: CASE EVENT DATE: 20170918
